FAERS Safety Report 6395510-4 (Version None)
Quarter: 2009Q4

REPORT INFORMATION
  Report Type: 
  Country: None (occurrence: None)
  Receive Date: 20091009
  Receipt Date: 20090930
  Transmission Date: 20100525
  Serious: Yes (Hospitalization, Other)
  Sender: FDA-Public Use
  Company Number: US-JNJFOC-20091000963

PATIENT
  Age: 41 Year
  Sex: Female

DRUGS (5)
  1. INFLIXIMAB [Suspect]
     Indication: CROHN'S DISEASE
     Route: 042
  2. GLARGINE [Concomitant]
  3. PANTOPRAZOLE SODIUM [Concomitant]
  4. AZATHIOPRINE [Concomitant]
  5. METOCLOPRAMIDE [Concomitant]

REACTIONS (4)
  - GASTROOESOPHAGEAL REFLUX DISEASE [None]
  - HYPOKALAEMIA [None]
  - MUCORMYCOSIS [None]
  - NAUSEA [None]
